FAERS Safety Report 10981945 (Version 1)
Quarter: 2015Q2

REPORT INFORMATION
  Report Type: Spontaneous
  Country: US (occurrence: US)
  Receive Date: 20150402
  Receipt Date: 20150402
  Transmission Date: 20150821
  Serious: Yes (Other)
  Sender: FDA-Public Use
  Company Number: US-AMGEN-USASP2015030291

PATIENT

DRUGS (4)
  1. ENBREL [Suspect]
     Active Substance: ETANERCEPT
     Indication: RHEUMATOID ARTHRITIS
     Dosage: UNK
     Route: 065
  2. BIAXIN [Concomitant]
     Active Substance: CLARITHROMYCIN
     Dosage: UNK
  3. CLINDAZOLE [Concomitant]
     Dosage: UNK
  4. DOXY                               /00055703/ [Concomitant]
     Dosage: UNK

REACTIONS (8)
  - Infection [Unknown]
  - Chlamydia test positive [Unknown]
  - Cytomegalovirus test positive [Unknown]
  - Headache [Unknown]
  - Parasite blood test positive [Unknown]
  - Mycoplasma test positive [Unknown]
  - Roseolovirus test positive [Unknown]
  - Epstein-Barr virus test positive [Unknown]
